FAERS Safety Report 6191355-9 (Version None)
Quarter: 2009Q2

REPORT INFORMATION
  Report Type: 
  Country: None (occurrence: None)
  Receive Date: 20090513
  Receipt Date: 20090513
  Transmission Date: 20091009
  Serious: Yes (Hospitalization, Other)
  Sender: FDA-Public Use
  Company Number: None

PATIENT
  Sex: Male
  Weight: 95.2554 kg

DRUGS (2)
  1. LEVETIRACETAM [Suspect]
     Indication: CONVULSION
     Dosage: 500 MG. 1 AT BEDTIME
     Dates: start: 20081120, end: 20090130
  2. LEVETIRACETAM [Suspect]
     Dosage: 250 MG. 1 AT MORNING
     Dates: start: 20081120, end: 20090130

REACTIONS (6)
  - MIGRAINE [None]
  - OPTIC NERVE DISORDER [None]
  - PRODUCT SUBSTITUTION ISSUE [None]
  - THERAPEUTIC AGENT TOXICITY [None]
  - TOOTH DISORDER [None]
  - UNEVALUABLE EVENT [None]
